FAERS Safety Report 13394128 (Version 3)
Quarter: 2017Q2

REPORT INFORMATION
  Report Type: Spontaneous
  Country: US (occurrence: US)
  Receive Date: 20170401
  Receipt Date: 20170522
  Transmission Date: 20170830
  Serious: Yes (Hospitalization, Other)
  Sender: FDA-Public Use
  Company Number: US-AUROBINDO-AUR-APL-2017-31814

PATIENT
  Age: 75 Year
  Sex: Female

DRUGS (1)
  1. FLECAINIDE 100 MG [Suspect]
     Active Substance: FLECAINIDE
     Indication: ATRIAL FIBRILLATION
     Dosage: 100 MG, TWO TIMES A DAY
     Route: 065

REACTIONS (8)
  - Atrioventricular block first degree [Recovered/Resolved]
  - Electrocardiogram QT prolonged [Recovered/Resolved]
  - Ataxia [Unknown]
  - Defect conduction intraventricular [Recovered/Resolved]
  - Confusional state [Recovered/Resolved]
  - Acute kidney injury [Unknown]
  - Asthenia [Recovered/Resolved]
  - Toxicity to various agents [Unknown]
